FAERS Safety Report 5114817-1 (Version None)
Quarter: 2006Q3

REPORT INFORMATION
  Report Type: 
  Country: None (occurrence: None)
  Receive Date: 20060926
  Receipt Date: 20060921
  Transmission Date: 20061208
  Serious: Yes (Other)
  Sender: FDA-Public Use
  Company Number: 2006UW18457

PATIENT
  Age: 50 Year
  Sex: Female
  Weight: 77.1 kg

DRUGS (3)
  1. SEROQUEL [Suspect]
     Indication: BIPOLAR DISORDER
     Route: 048
     Dates: start: 19960101, end: 20060801
  2. SEROQUEL [Suspect]
     Indication: SUICIDAL IDEATION
     Route: 048
     Dates: start: 19960101, end: 20060801
  3. EFFEXOR [Concomitant]

REACTIONS (2)
  - PARANOIA [None]
  - SUICIDAL IDEATION [None]
